FAERS Safety Report 7392646-6 (Version None)
Quarter: 2011Q2

REPORT INFORMATION
  Report Type: 
  Country: None (occurrence: None)
  Receive Date: 20110404
  Receipt Date: 20110329
  Transmission Date: 20111010
  Serious: Yes (Death)
  Sender: FDA-Public Use
  Company Number: BR-ASTRAZENECA-2011SE17597

PATIENT
  Age: 71 Year
  Sex: Female

DRUGS (2)
  1. SEROQUEL [Suspect]
     Indication: INSOMNIA
     Route: 048
     Dates: start: 20100101
  2. ANSIOLITIC [Concomitant]

REACTIONS (3)
  - URINARY TRACT INFECTION [None]
  - DRUG PRESCRIBING ERROR [None]
  - INFECTION [None]
